FAERS Safety Report 6857633-2 (Version None)
Quarter: 2010Q3

REPORT INFORMATION
  Report Type: 
  Country: None (occurrence: None)
  Receive Date: 20100719
  Receipt Date: 20080315
  Transmission Date: 20110219
  Serious: Yes (Other)
  Sender: FDA-Public Use
  Company Number: US-PFIZER INC-2008008273

PATIENT
  Sex: Male
  Weight: 77.1 kg

DRUGS (4)
  1. CHANTIX [Suspect]
     Indication: SMOKING CESSATION THERAPY
     Dates: start: 20080101, end: 20080124
  2. CHANTIX [Suspect]
     Indication: TOBACCO ABUSE
  3. BUPROPION [Concomitant]
     Indication: DEPRESSION
  4. WELLBUTRIN [Concomitant]
     Route: 048
     Dates: start: 20070625, end: 20080101

REACTIONS (4)
  - DEPRESSION [None]
  - SUICIDAL IDEATION [None]
  - SUSPICIOUSNESS [None]
  - WEIGHT INCREASED [None]
